FAERS Safety Report 7872259-X (Version None)
Quarter: 2011Q4

REPORT INFORMATION
  Report Type: 
  Country: None (occurrence: None)
  Receive Date: 20111029
  Receipt Date: 20110316
  Transmission Date: 20120403
  Serious: No
  Sender: FDA-Public Use
  Company Number: US-AMGEN-USASP2011014581

PATIENT
  Sex: Female

DRUGS (4)
  1. ARAVA [Concomitant]
     Dosage: 10 MG, UNK
  2. ENBREL [Suspect]
     Indication: PRODUCT USED FOR UNKNOWN INDICATION
     Dosage: 50 MG, QWK
  3. PREDNISONE [Concomitant]
     Dosage: 1 MG, UNK
  4. DICLOFENAC SODIUM [Concomitant]
     Dosage: 25 MG, UNK

REACTIONS (3)
  - PARAESTHESIA [None]
  - SKIN DISCOLOURATION [None]
  - PRURITUS [None]
